FAERS Safety Report 18322774 (Version 1)
Quarter: 2020Q3

REPORT INFORMATION
  Report Type: Report from Study
  Country: BR (occurrence: BR)
  Receive Date: 20200928
  Receipt Date: 20200928
  Transmission Date: 20201103
  Serious: Yes (Other)
  Sender: FDA-Public Use
  Company Number: BR-UCBSA-2020038058

PATIENT
  Age: 48 Year
  Sex: Female
  Weight: 69 kg

DRUGS (8)
  1. GLICAZIDA [Concomitant]
     Active Substance: GLICLAZIDE
     Indication: DIABETES MELLITUS
     Dosage: UNK
     Route: 048
     Dates: start: 2010
  2. SUNFLOWER OIL [Concomitant]
     Active Substance: HERBALS\SUNFLOWER OIL
  3. PREDNISONA [Concomitant]
     Active Substance: PREDNISONE
     Indication: PAIN
     Dosage: 20 MILLIGRAM, UNK
     Route: 048
     Dates: start: 202007
  4. CERTOLIZUMAB PEGOL [Suspect]
     Active Substance: CERTOLIZUMAB PEGOL
     Indication: RHEUMATOID ARTHRITIS
     Dosage: UNK
     Route: 058
     Dates: start: 201801, end: 20200909
  5. LORATADINA [Concomitant]
     Active Substance: LORATADINE
     Indication: HYPERSENSITIVITY
     Dosage: 10 MILLIGRAM, UNK
     Route: 048
     Dates: start: 20200811
  6. COCONUT OIL [Concomitant]
     Active Substance: COCONUT OIL
  7. HIXIZINE [Concomitant]
     Active Substance: HYDROXYZINE HYDROCHLORIDE
     Dosage: UNK
     Route: 048
     Dates: start: 202007
  8. METFORMIN [Concomitant]
     Active Substance: METFORMIN HYDROCHLORIDE
     Indication: DIABETES MELLITUS
     Dosage: UNK
     Route: 048
     Dates: start: 2010

REACTIONS (13)
  - Pneumonia [Recovered/Resolved]
  - Hypersensitivity [Recovering/Resolving]
  - Erythema [Unknown]
  - Dry skin [Recovering/Resolving]
  - Weight increased [Unknown]
  - Joint lock [Unknown]
  - Pain [Recovering/Resolving]
  - Pyrexia [Recovered/Resolved]
  - Trismus [Unknown]
  - Epistaxis [Recovered/Resolved]
  - Urinary tract infection [Recovered/Resolved]
  - Sinusitis [Not Recovered/Not Resolved]
  - Joint swelling [Unknown]

NARRATIVE: CASE EVENT DATE: 201908
